FAERS Safety Report 13003199 (Version 1)
Quarter: 2016Q4

REPORT INFORMATION
  Report Type: Spontaneous
  Country: US (occurrence: US)
  Receive Date: 20161206
  Receipt Date: 20161206
  Transmission Date: 20170207
  Serious: No
  Sender: FDA-Public Use
  Company Number: US-TARO-2016TAR00876

PATIENT
  Age: 80 Year
  Sex: Male

DRUGS (2)
  1. FLUOCINOLONE ACETONIDE TOPICAL OIL, 0.01 % [Suspect]
     Active Substance: FLUOCINOLONE ACETONIDE
     Indication: PAPULE
  2. FLUOCINOLONE ACETONIDE TOPICAL OIL, 0.01 % [Suspect]
     Active Substance: FLUOCINOLONE ACETONIDE
     Indication: RASH
     Dosage: UNK UNK, 3X/DAY
     Route: 061
     Dates: start: 201608

REACTIONS (4)
  - Drug effect incomplete [Not Recovered/Not Resolved]
  - Sleep disorder [Not Recovered/Not Resolved]
  - Skin irritation [Not Recovered/Not Resolved]
  - Pruritus [Not Recovered/Not Resolved]

NARRATIVE: CASE EVENT DATE: 2016
